FAERS Safety Report 4457315-0 (Version None)
Quarter: 2004Q3

REPORT INFORMATION
  Report Type: 
  Country: None (occurrence: None)
  Receive Date: 20040921
  Receipt Date: 20040914
  Transmission Date: 20050211
  Serious: Yes (Other)
  Sender: FDA-Public Use
  Company Number: B0344156A

PATIENT
  Age: 46 Year
  Sex: Male
  Weight: 73.8456 kg

DRUGS (2)
  1. ZYBAN [Suspect]
     Indication: EX-SMOKER
     Dosage: 150 MG/SEE DOSAGE TEXT/ORAL
     Route: 048
     Dates: start: 20040306
  2. BROMAZEPAM [Concomitant]

REACTIONS (13)
  - ANHEDONIA [None]
  - ANXIETY [None]
  - ASTHENIA [None]
  - DRUG DEPENDENCE [None]
  - EUPHORIC MOOD [None]
  - EXCITABILITY [None]
  - FORMICATION [None]
  - INTENTIONAL MISUSE [None]
  - MALAISE [None]
  - MEDICATION ERROR [None]
  - MORBID THOUGHTS [None]
  - PALLOR [None]
  - TRANSAMINASES INCREASED [None]
